FAERS Safety Report 6769906-2 (Version None)
Quarter: 2010Q2

REPORT INFORMATION
  Report Type: 
  Country: None (occurrence: None)
  Receive Date: 20100615
  Receipt Date: 20100607
  Transmission Date: 20101027
  Serious: Yes (Hospitalization)
  Sender: FDA-Public Use
  Company Number: A0863349A

PATIENT
  Sex: Female

DRUGS (2)
  1. LAMICTAL [Suspect]
     Indication: AFFECTIVE DISORDER
     Dosage: 150MG PER DAY
     Route: 048
     Dates: start: 20090101
  2. ATENOLOL [Concomitant]
     Indication: HYPERTENSION

REACTIONS (4)
  - CARDIAC FAILURE CONGESTIVE [None]
  - FIBROMYALGIA [None]
  - PNEUMONIA [None]
  - THERAPEUTIC RESPONSE UNEXPECTED [None]
